FAERS Safety Report 10501631 (Version 1)
Quarter: 2014Q4

REPORT INFORMATION
  Report Type: Spontaneous
  Country: US (occurrence: US)
  Receive Date: 20141007
  Receipt Date: 20141007
  Transmission Date: 20150528
  Serious: No
  Sender: FDA-Public Use
  Company Number: US-009507513-1409USA011090

PATIENT
  Age: 74 Year
  Sex: Male

DRUGS (1)
  1. ZETIA [Suspect]
     Active Substance: EZETIMIBE
     Dosage: ONCE DAILY
     Route: 048
     Dates: start: 201109

REACTIONS (2)
  - Headache [Unknown]
  - Muscle spasms [Unknown]
